FAERS Safety Report 8784668 (Version 7)
Quarter: 2013Q1

REPORT INFORMATION
  Report Type: Spontaneous
  Country: ES (occurrence: None)
  Receive Date: 20120827
  Receipt Date: 20130114
  Transmission Date: 20140127
  Serious: Yes (Other)
  Sender: FDA-Public Use
  Company Number: DSA_58958_2012

PATIENT
  Age: 45 Year
  Sex: Female

DRUGS (3)
  1. FLAGYL [Suspect]
     Indication: PRODUCT USED FOR UNKNOWN INDICATION
     Dosage: (DF)
  2. METHOTREXATE [Suspect]
     Indication: PRODUCT USED FOR UNKNOWN INDICATION
     Dosage: (15MG EVERY 4 HOURS ORAL)
     Dates: start: 20120403, end: 20120408
  3. CIPROFLOXACIN (04/03/2012 TO 04/08/2012) [Concomitant]

REACTIONS (24)
  - Wrong drug administered [None]
  - Muscle injury [None]
  - Aphonia [None]
  - Vocal cord disorder [None]
  - Myalgia [None]
  - Alopecia [None]
  - Swelling face [None]
  - Anaemia [None]
  - Fatigue [None]
  - Conjunctivitis [None]
  - Aphthous stomatitis [None]
  - Photosensitivity reaction [None]
  - Dysphagia [None]
  - Odynophagia [None]
  - Aphthous stomatitis [None]
  - Dyspepsia [None]
  - Stomatitis [None]
  - Leukopenia [None]
  - Hypertension [None]
  - Hypothyroidism [None]
  - Multi-organ disorder [None]
  - Toxicity to various agents [None]
  - Multiple injuries [None]
  - Quality of life decreased [None]
